FAERS Safety Report 4933301-9 (Version None)
Quarter: 2006Q1

REPORT INFORMATION
  Report Type: 
  Country: None (occurrence: None)
  Receive Date: 20060306
  Receipt Date: 20051115
  Transmission Date: 20060701
  Serious: Yes (Hospitalization)
  Sender: FDA-Public Use
  Company Number: US-MERCK-0511USA02560

PATIENT
  Age: 56 Year
  Sex: Female
  Weight: 79 kg

DRUGS (2)
  1. VIOXX [Suspect]
     Indication: PROCEDURAL PAIN
     Route: 048
     Dates: start: 20000301, end: 20010401
  2. VIOXX [Suspect]
     Indication: ARTHRITIS
     Route: 048
     Dates: start: 20000301, end: 20010401

REACTIONS (2)
  - JOINT INJURY [None]
  - MYOCARDIAL INFARCTION [None]
